FAERS Safety Report 7401825-0 (Version None)
Quarter: 2011Q1

REPORT INFORMATION
  Report Type: 
  Country: None (occurrence: None)
  Receive Date: 20110329
  Receipt Date: 20110316
  Transmission Date: 20110831
  Serious: Yes (Other)
  Sender: FDA-Public Use
  Company Number: 024590

PATIENT
  Sex: Male

DRUGS (2)
  1. OMEOPATIC PREPARATION [Concomitant]
  2. NEUPRO [Suspect]
     Indication: PARKINSON'S DISEASE
     Dosage: (TRANSDERMAL), (8 MG TRANSDERMAL)
     Route: 062

REACTIONS (6)
  - IMPAIRED DRIVING ABILITY [None]
  - NIGHT BLINDNESS [None]
  - INTERVERTEBRAL DISC PROTRUSION [None]
  - BONE DENSITY DECREASED [None]
  - VISION BLURRED [None]
  - VITREOUS OPACITIES [None]
